FAERS Safety Report 8480968-7 (Version None)
Quarter: 2012Q3

REPORT INFORMATION
  Report Type: 
  Country: None (occurrence: None)
  Receive Date: 20120702
  Receipt Date: 20120626
  Transmission Date: 20120928
  Serious: Yes (Other)
  Sender: FDA-Public Use
  Company Number: US-SANOFI-AVENTIS-2012SA045828

PATIENT
  Age: 84 Year
  Sex: Male

DRUGS (10)
  1. MULTAQ [Suspect]
     Indication: ATRIAL FIBRILLATION
     Route: 048
  2. ROSUVASTATIN [Concomitant]
  3. LUMIGAN [Concomitant]
  4. MULTIVITAMIN [Concomitant]
  5. ISOSORBIDE [Concomitant]
  6. VITAMIN D [Concomitant]
  7. ASCORBIC ACID [Concomitant]
  8. WARFARIN SODIUM [Concomitant]
  9. ASPIRIN [Concomitant]
  10. ALPHAGAN [Concomitant]

REACTIONS (2)
  - CONDITION AGGRAVATED [None]
  - GLAUCOMA [None]
